FAERS Safety Report 19961195 (Version 4)
Quarter: 2022Q1

REPORT INFORMATION
  Report Type: Report from Study
  Country: CA (occurrence: CA)
  Receive Date: 20211016
  Receipt Date: 20220321
  Transmission Date: 20220423
  Serious: Yes (Other)
  Sender: FDA-Public Use
  Company Number: CA-NOVARTISPH-PHHY2013CA043848

PATIENT
  Age: 44 Year
  Sex: Female

DRUGS (9)
  1. SANDOSTATIN LAR DEPOT [Suspect]
     Active Substance: OCTREOTIDE ACETATE
     Indication: Carcinoid tumour of the appendix
     Dosage: 10 MG, QW4
     Route: 030
     Dates: start: 20130403, end: 201509
  2. SANDOSTATIN LAR DEPOT [Suspect]
     Active Substance: OCTREOTIDE ACETATE
     Dosage: 10 MG, QMO
     Route: 030
     Dates: start: 20151010
  3. SANDOSTATIN LAR DEPOT [Suspect]
     Active Substance: OCTREOTIDE ACETATE
  4. SANDOSTATIN [Suspect]
     Active Substance: OCTREOTIDE ACETATE
     Indication: Carcinoid tumour of the appendix
     Dosage: 50 UG, BID (PRN)
     Route: 058
     Dates: start: 20130403
  5. OCTREOTIDE [Suspect]
     Active Substance: OCTREOTIDE
     Indication: Carcinoid tumour of the appendix
     Dosage: UNK UNK, PRN
     Route: 058
     Dates: start: 20130403
  6. OCTREOTIDE [Suspect]
     Active Substance: OCTREOTIDE
  7. OCTREOTIDE [Suspect]
     Active Substance: OCTREOTIDE
  8. PROGESTERONE [Concomitant]
     Active Substance: PROGESTERONE
     Indication: Product used for unknown indication
     Dosage: UNK (FREQUENCY: DIE)
     Route: 048
  9. ESTRADIOL [Concomitant]
     Active Substance: ESTRADIOL
     Indication: Product used for unknown indication
     Dosage: UNK (FREQUENCY : DIE)
     Route: 048

REACTIONS (13)
  - Blood pressure increased [Unknown]
  - Stress [Unknown]
  - Insomnia [Unknown]
  - Blood triglycerides increased [Unknown]
  - Blood pressure systolic increased [Unknown]
  - COVID-19 [Unknown]
  - Blood pressure diastolic decreased [Unknown]
  - Fatigue [Unknown]
  - Injection site mass [Unknown]
  - Injection site warmth [Unknown]
  - Injection site induration [Unknown]
  - Injection site pain [Unknown]
  - Injection site haemorrhage [Unknown]

NARRATIVE: CASE EVENT DATE: 20130403
